FAERS Safety Report 7468349-6 (Version None)
Quarter: 2011Q2

REPORT INFORMATION
  Report Type: 
  Country: None (occurrence: None)
  Receive Date: 20110509
  Receipt Date: 20110403
  Transmission Date: 20111010
  Serious: Yes (Hospitalization, Other)
  Sender: FDA-Public Use
  Company Number: US-BAYER-201027345NA

PATIENT
  Age: 37 Year
  Sex: Female
  Weight: 66.667 kg

DRUGS (4)
  1. SEASONIQUE [Concomitant]
     Dosage: UNK
     Dates: start: 20090101
  2. YASMIN [Suspect]
     Indication: PREMENSTRUAL SYNDROME
     Dosage: UNK UNK, UNK
     Route: 048
     Dates: start: 20041001, end: 20081001
  3. YAZ [Suspect]
     Indication: PREMENSTRUAL SYNDROME
     Dosage: UNK UNK, UNK
     Route: 048
     Dates: start: 20081001, end: 20090601
  4. LACTULOSE [Concomitant]
     Dosage: UNK
     Dates: start: 20090101

REACTIONS (1)
  - CHOLECYSTECTOMY [None]
